FAERS Safety Report 7932783-8 (Version None)
Quarter: 2011Q4

REPORT INFORMATION
  Report Type: 
  Country: None (occurrence: None)
  Receive Date: 20111122
  Receipt Date: 20111108
  Transmission Date: 20120403
  Serious: Yes (Other)
  Sender: FDA-Public Use
  Company Number: BR-US-EMD SERONO, INC.-7095278

PATIENT
  Sex: Female

DRUGS (3)
  1. FLUOXETINE [Concomitant]
  2. REBIF [Suspect]
     Indication: RELAPSING-REMITTING MULTIPLE SCLEROSIS
  3. ATENOLOL [Concomitant]

REACTIONS (3)
  - LYMPHADENITIS BACTERIAL [None]
  - PRURITUS GENERALISED [None]
  - INJECTION SITE NODULE [None]
